FAERS Safety Report 9882162 (Version 1)
Quarter: 2014Q1

REPORT INFORMATION
  Report Type: Spontaneous
  Country: IT (occurrence: IT)
  Receive Date: 20140207
  Receipt Date: 20140207
  Transmission Date: 20141002
  Serious: Yes (Other)
  Sender: FDA-Public Use
  Company Number: IT-WATSON-2014-01662

PATIENT
  Age: 53 Year
  Sex: Male

DRUGS (1)
  1. RISPERIDONE ACTAVIS [Suspect]
     Indication: SCHIZOPHRENIA
     Dosage: 6 MG/DIE
     Route: 048

REACTIONS (4)
  - Paranoia [Recovered/Resolved]
  - Psychiatric decompensation [Recovered/Resolved]
  - Restlessness [Recovered/Resolved]
  - Sleep disorder [Recovered/Resolved]
